FAERS Safety Report 6408116-5 (Version None)
Quarter: 2009Q4

REPORT INFORMATION
  Report Type: 
  Country: None (occurrence: None)
  Receive Date: 20091016
  Receipt Date: 20091008
  Transmission Date: 20100525
  Serious: Yes (Other)
  Sender: FDA-Public Use
  Company Number: 2009SP029426

PATIENT
  Age: 50 Year
  Sex: Female

DRUGS (6)
  1. DESLORATADINE [Suspect]
     Indication: URTICARIA
     Dosage: 5 MG
     Dates: start: 20090914, end: 20090928
  2. ENBREL [Concomitant]
  3. MEDROL [Concomitant]
  4. NAPROSYN [Concomitant]
  5. LOSEC [Concomitant]
  6. XOZAL [Concomitant]

REACTIONS (2)
  - ARRHYTHMIA [None]
  - TACHYCARDIA [None]
